FAERS Safety Report 19711407 (Version 1)
Quarter: 2021Q3

REPORT INFORMATION
  Report Type: Spontaneous
  Country: CA (occurrence: CA)
  Receive Date: 20210817
  Receipt Date: 20210817
  Transmission Date: 20211014
  Serious: Yes (Hospitalization, Other)
  Sender: FDA-Public Use
  Company Number: CA-BRISTOL-MYERS SQUIBB COMPANY-BMS-2021-078935

PATIENT
  Age: 65 Year
  Sex: Male
  Weight: 65 kg

DRUGS (2)
  1. YERVOY [Suspect]
     Active Substance: IPILIMUMAB
     Indication: NEOPLASM MALIGNANT
     Dosage: 50MG/10 ML AND 200MG/40ML SINGLE USE VIALS, 1 EVERY 21 DAYS
     Route: 042
  2. NIVOLUMAB [Suspect]
     Active Substance: NIVOLUMAB
     Indication: PRODUCT USED FOR UNKNOWN INDICATION
     Dosage: 1 EVERY 21 DAYS
     Route: 065

REACTIONS (8)
  - Diarrhoea [Recovering/Resolving]
  - Immune-mediated enterocolitis [Recovering/Resolving]
  - Pyrexia [Recovering/Resolving]
  - Nausea [Recovering/Resolving]
  - Decreased appetite [Recovering/Resolving]
  - Liver injury [Recovering/Resolving]
  - General physical health deterioration [Recovering/Resolving]
  - Fatigue [Recovering/Resolving]
